FAERS Safety Report 5690037-7 (Version None)
Quarter: 2008Q2

REPORT INFORMATION
  Report Type: 
  Country: None (occurrence: None)
  Receive Date: 20080401
  Receipt Date: 20080221
  Transmission Date: 20081010
  Serious: No
  Sender: FDA-Public Use
  Company Number: US-BAYER-200814891NA

PATIENT
  Age: 41 Year
  Sex: Female
  Weight: 82 kg

DRUGS (1)
  1. MAGNEVIST SINGLE USE [Suspect]
     Indication: NUCLEAR MAGNETIC RESONANCE IMAGING
     Route: 042
     Dates: start: 20080221, end: 20080221

REACTIONS (2)
  - BURNING SENSATION [None]
  - HYPOAESTHESIA ORAL [None]
